FAERS Safety Report 5997993-8 (Version None)
Quarter: 2008Q4

REPORT INFORMATION
  Report Type: 
  Country: None (occurrence: None)
  Receive Date: 20081211
  Receipt Date: 20081201
  Transmission Date: 20090506
  Serious: Yes (Death, Hospitalization)
  Sender: FDA-Public Use
  Company Number: 07H-163-0313395-00

PATIENT
  Age: 59 Year
  Sex: Female
  Weight: 74.4 kg

DRUGS (8)
  1. MORPHINE SULFATE INJ [Suspect]
     Dosage: 2 MG, INTRAVENOUS
     Route: 042
     Dates: start: 20071001, end: 20071001
  2. CYTARABINE [Suspect]
     Indication: ACUTE MYELOID LEUKAEMIA
     Dates: start: 20070907, end: 20070907
  3. CEP-701 [Concomitant]
  4. LOTREL [Concomitant]
  5. LANTUS [Concomitant]
  6. MULTIVITAMIN (MULTIVITAMIN) [Concomitant]
  7. ASPIRIN [Concomitant]
  8. FLAGYL [Concomitant]

REACTIONS (4)
  - APNOEA [None]
  - CARDIAC ARREST [None]
  - STENOTROPHOMONAS SEPSIS [None]
  - UNRESPONSIVE TO STIMULI [None]
